FAERS Safety Report 4867339-7 (Version None)
Quarter: 2005Q4

REPORT INFORMATION
  Report Type: 
  Country: None (occurrence: None)
  Receive Date: 20051228
  Receipt Date: 20051215
  Transmission Date: 20060501
  Serious: Yes (Hospitalization)
  Sender: FDA-Public Use
  Company Number: AU-AVENTIS-200515034EU

PATIENT
  Age: 69 Year
  Sex: Female

DRUGS (3)
  1. NATRILIX - SLOW RELEASE [Suspect]
     Route: 048
     Dates: start: 20030210, end: 20050111
  2. CELECOXIB [Suspect]
     Indication: ARTHRALGIA
     Route: 048
  3. UNKNOWN DRUG [Concomitant]

REACTIONS (5)
  - DIZZINESS [None]
  - HYPERKALAEMIA [None]
  - HYPOALDOSTERONISM [None]
  - HYPONATRAEMIA [None]
  - LETHARGY [None]
